FAERS Safety Report 17779261 (Version 2)
Quarter: 2020Q2

REPORT INFORMATION
  Report Type: Spontaneous
  Country: US (occurrence: US)
  Receive Date: 20200514
  Receipt Date: 20200522
  Transmission Date: 20200714
  Serious: No
  Sender: FDA-Public Use
  Company Number: US-ASTRAZENECA-2020SE62789

PATIENT
  Age: 55 Year

DRUGS (2)
  1. SEROQUEL [Suspect]
     Active Substance: QUETIAPINE FUMARATE
     Route: 048
  2. HUMIRA [Suspect]
     Active Substance: ADALIMUMAB
     Route: 058
     Dates: start: 201906

REACTIONS (6)
  - Blood pressure increased [Unknown]
  - Panic attack [Unknown]
  - Dyspnoea [Unknown]
  - Heart rate increased [Unknown]
  - Blood glucose increased [Unknown]
  - Chest discomfort [Unknown]
